FAERS Safety Report 5140160-0 (Version None)
Quarter: 2006Q4

REPORT INFORMATION
  Report Type: 
  Country: None (occurrence: None)
  Receive Date: 20061024
  Receipt Date: 20061004
  Transmission Date: 20070319
  Serious: Yes (Hospitalization, Other)
  Sender: FDA-Public Use
  Company Number: US200601001298

PATIENT
  Age: 38 Year
  Sex: Male
  Weight: 140.1 kg

DRUGS (16)
  1. ZYPREXA [Suspect]
     Indication: ANXIETY
     Dosage: SEE IMAGE
     Route: 048
     Dates: start: 20030501, end: 20030501
  2. ZYPREXA [Suspect]
     Indication: ANXIETY
     Dosage: SEE IMAGE
     Route: 048
     Dates: start: 20020717, end: 20030601
  3. ZYPREXA [Suspect]
     Indication: ANXIETY
     Dosage: SEE IMAGE
     Route: 048
     Dates: end: 20030601
  4. ALPRAZOLAM [Concomitant]
  5. RANITIDINE [Concomitant]
  6. LANSOPRAZOLE [Concomitant]
  7. POTASSIUM CHLORIDE [Concomitant]
  8. FUROSEMIDE [Concomitant]
  9. LEVOTHYROXINE SODIUM [Concomitant]
  10. ATENOLOL [Concomitant]
  11. METOLAZONE [Concomitant]
  12. DILTIAZEM [Concomitant]
  13. VALSARTAN [Concomitant]
  14. TRAMADOL HCL [Concomitant]
  15. ASPIRIN [Concomitant]
  16. OMEPRAZOLE [Concomitant]

REACTIONS (25)
  - ABSCESS [None]
  - CELLULITIS [None]
  - DIABETES MELLITUS NON-INSULIN-DEPENDENT [None]
  - DIABETIC NEUROPATHY [None]
  - DYSPNOEA [None]
  - GLYCOSYLATED HAEMOGLOBIN INCREASED [None]
  - HAEMATOCRIT DECREASED [None]
  - HAEMOGLOBIN DECREASED [None]
  - HYPERCHOLESTEROLAEMIA [None]
  - HYPERTRIGLYCERIDAEMIA [None]
  - HYPOKALAEMIA [None]
  - IMPAIRED HEALING [None]
  - MULTIPLE DRUG OVERDOSE INTENTIONAL [None]
  - MUSCLE SPASMS [None]
  - OEDEMA PERIPHERAL [None]
  - OSTEOARTHRITIS [None]
  - PAIN IN EXTREMITY [None]
  - SKIN GRAFT [None]
  - SKIN ULCER [None]
  - SOMNOLENCE [None]
  - STASIS DERMATITIS [None]
  - TREATMENT NONCOMPLIANCE [None]
  - UNRESPONSIVE TO STIMULI [None]
  - URINARY INCONTINENCE [None]
  - WEIGHT INCREASED [None]
